FAERS Safety Report 12852977 (Version 1)
Quarter: 2016Q4

REPORT INFORMATION
  Report Type: Spontaneous
  Country: DE (occurrence: DE)
  Receive Date: 20161017
  Receipt Date: 20161017
  Transmission Date: 20170207
  Serious: Yes (Other)
  Sender: FDA-Public Use
  Company Number: DE-PFIZER INC-2016468537

PATIENT
  Age: 62 Year
  Sex: Male

DRUGS (1)
  1. XALATAN [Suspect]
     Active Substance: LATANOPROST
     Indication: INTRAOCULAR PRESSURE TEST
     Dosage: UNK

REACTIONS (6)
  - Visual acuity reduced [Unknown]
  - Vision blurred [Unknown]
  - Nasal congestion [Unknown]
  - Dyspnoea [Unknown]
  - Chest discomfort [Unknown]
  - Headache [Unknown]
